FAERS Safety Report 9632439 (Version 1)
Quarter: 2013Q4

REPORT INFORMATION
  Report Type: Spontaneous
  Country: US (occurrence: US)
  Receive Date: 20131018
  Receipt Date: 20131018
  Transmission Date: 20140711
  Serious: No
  Sender: FDA-Public Use
  Company Number: US-PFIZER INC-2013295241

PATIENT
  Age: 68 Year
  Sex: Female
  Weight: 48.07 kg

DRUGS (5)
  1. LYRICA [Suspect]
     Indication: FIBROMYALGIA
     Dosage: 450 MG, DAILY
  2. NUVIGIL [Concomitant]
     Dosage: UNK
  3. PREMARIN [Concomitant]
     Dosage: 0.625 MG, UNK
  4. REMERON [Concomitant]
     Dosage: 30 MG, UNK
  5. ZYPREXA [Concomitant]
     Dosage: 2.5 MG, UNK

REACTIONS (1)
  - Pain [Not Recovered/Not Resolved]
